FAERS Safety Report 10383057 (Version 6)
Quarter: 2019Q2

REPORT INFORMATION
  Report Type: Report from Study
  Country: US (occurrence: US)
  Receive Date: 20140813
  Receipt Date: 20190529
  Transmission Date: 20190711
  Serious: Yes (Hospitalization)
  Sender: FDA-Public Use
  Company Number: US-SA-2014SA101321

PATIENT
  Age: 34 Year
  Sex: Female

DRUGS (8)
  1. AGALSIDASE BETA [Suspect]
     Active Substance: AGALSIDASE BETA
     Dosage: DOSE: 1.00 FREQUENCY: Q2
     Route: 041
     Dates: start: 2016
  2. AGALSIDASE BETA [Suspect]
     Active Substance: AGALSIDASE BETA
     Indication: FABRY^S DISEASE
     Dosage: 105, Q2
     Route: 041
     Dates: start: 20140505
  3. AGALSIDASE BETA [Suspect]
     Active Substance: AGALSIDASE BETA
     Dosage: 105 MG,QOW
     Route: 041
     Dates: end: 20160316
  4. AGALSIDASE BETA [Suspect]
     Active Substance: AGALSIDASE BETA
     Dosage: DOSE: 105; FREQUENCY: Q2
     Route: 041
     Dates: start: 20180220
  5. OXYCODONE HYDROCHLORIDE;PARACETAMOL [Suspect]
     Active Substance: ACETAMINOPHEN\OXYCODONE HYDROCHLORIDE
     Indication: MIGRAINE
     Dosage: UNK UNK,UNK
     Route: 065
  6. BENADRYL [Concomitant]
     Active Substance: DIPHENHYDRAMINE HYDROCHLORIDE
     Indication: PREMEDICATION
     Dosage: UNK
     Route: 042
  7. AGALSIDASE BETA [Suspect]
     Active Substance: AGALSIDASE BETA
     Dosage: 1 MG/KG,QOW
     Route: 041
     Dates: start: 20140515
  8. AGALSIDASE BETA [Suspect]
     Active Substance: AGALSIDASE BETA
     Dosage: 1 MG/KG,QOW
     Route: 041

REACTIONS (29)
  - Heart rate increased [Unknown]
  - Epigastric discomfort [Unknown]
  - Headache [Unknown]
  - Rash [Recovering/Resolving]
  - Pre-eclampsia [Unknown]
  - Infusion site scar [Unknown]
  - Contusion [Recovering/Resolving]
  - Influenza [Unknown]
  - Exposure during pregnancy [Unknown]
  - Pain [Unknown]
  - Skin ulcer haemorrhage [Unknown]
  - Scar [Unknown]
  - Breast haematoma [Recovering/Resolving]
  - Chest pain [Unknown]
  - Limb injury [Recovering/Resolving]
  - Feeling abnormal [Unknown]
  - Hypertension [Not Recovered/Not Resolved]
  - Chest pain [Unknown]
  - Abdominal discomfort [Unknown]
  - Blister [Unknown]
  - Visual impairment [Unknown]
  - Protein urine [Unknown]
  - Blood pressure increased [Unknown]
  - Migraine [Unknown]
  - Nausea [Unknown]
  - Vomiting [Unknown]
  - Blood potassium decreased [Unknown]
  - Road traffic accident [Recovering/Resolving]
  - Infusion site bruising [Unknown]

NARRATIVE: CASE EVENT DATE: 2014
